FAERS Safety Report 11876243 (Version 2)
Quarter: 2015Q4

REPORT INFORMATION
  Report Type: Report from Study
  Country: CA (occurrence: CA)
  Receive Date: 20151229
  Receipt Date: 20151230
  Transmission Date: 20160305
  Serious: Yes (Hospitalization, Other)
  Sender: FDA-Public Use
  Company Number: CA-GILEAD-2015-0190071

PATIENT
  Age: 43 Year
  Sex: Male

DRUGS (2)
  1. SOFOSBUVIR [Suspect]
     Active Substance: SOFOSBUVIR
     Indication: CHRONIC HEPATITIS C
     Dosage: 400 MG, QD
     Route: 048
     Dates: start: 20151022
  2. IBAVYR [Suspect]
     Active Substance: RIBAVIRIN
     Indication: CHRONIC HEPATITIS C
     Dosage: 600 MG, QD
     Route: 048
     Dates: start: 20151022

REACTIONS (9)
  - Confusional state [Unknown]
  - Decreased appetite [Not Recovered/Not Resolved]
  - Diabetic ketoacidosis [Unknown]
  - Drug dose omission [Unknown]
  - Hyperkalaemia [Unknown]
  - Anxiety [Not Recovered/Not Resolved]
  - Balance disorder [Unknown]
  - Vomiting [Not Recovered/Not Resolved]
  - Sleep disorder [Unknown]

NARRATIVE: CASE EVENT DATE: 2015
